FAERS Safety Report 22752981 (Version 2)
Quarter: 2023Q4

REPORT INFORMATION
  Report Type: Spontaneous
  Country: US (occurrence: US)
  Receive Date: 20230726
  Receipt Date: 20231026
  Transmission Date: 20240110
  Serious: Yes (Other)
  Sender: FDA-Public Use
  Company Number: US-BRISTOL-MYERS SQUIBB COMPANY-2023-104900

PATIENT
  Age: 80 Year
  Sex: Female
  Weight: 60.96 kg

DRUGS (2)
  1. OPDIVO [Suspect]
     Active Substance: NIVOLUMAB
     Indication: Oesophageal carcinoma
     Dosage: DOSE : OPDIVO 360MG, FREQ : OPDIVO EVERY 3 WEEKS, STRENGTH 240MG AND 120MG VIALS
     Route: 042
  2. YERVOY [Suspect]
     Active Substance: IPILIMUMAB
     Indication: Oesophageal carcinoma
     Dosage: DOSE: YERVOY 61 MG, FREQ: EVERY 6 WEEKS, STRENGTH: 50MG VIALS
     Route: 042

REACTIONS (1)
  - Malignant neoplasm progression [Unknown]
